FAERS Safety Report 12787988 (Version 3)
Quarter: 2016Q4

REPORT INFORMATION
  Report Type: Spontaneous
  Country: JP (occurrence: JP)
  Receive Date: 20160928
  Receipt Date: 20161130
  Transmission Date: 20170207
  Serious: Yes (Other)
  Sender: FDA-Public Use
  Company Number: JP-PFIZER INC-2016450933

PATIENT
  Age: 80 Year
  Sex: Male

DRUGS (6)
  1. ALOGLIPTIN. [Suspect]
     Active Substance: ALOGLIPTIN
     Indication: DIABETES MELLITUS
     Dosage: 25 MG, 1X/DAY
     Route: 048
     Dates: start: 20121128
  2. METFORMIN HCL [Suspect]
     Active Substance: METFORMIN HYDROCHLORIDE
     Indication: DIABETES MELLITUS
     Dosage: 500 MG, 1X/DAY
     Route: 048
  3. METFORMIN HCL [Suspect]
     Active Substance: METFORMIN HYDROCHLORIDE
     Dosage: 1000 MG, 1X/DAY
     Route: 048
     Dates: start: 20120404
  4. MIGLITOL. [Suspect]
     Active Substance: MIGLITOL
     Indication: DIABETES MELLITUS
     Dosage: 150 MG, 1X/DAY
     Route: 048
     Dates: start: 20150610
  5. GLIMEPIRIDE. [Suspect]
     Active Substance: GLIMEPIRIDE
     Indication: DIABETES MELLITUS
     Dosage: 0.5 MG, 1X/DAY
     Route: 048
  6. GLIMEPIRIDE. [Suspect]
     Active Substance: GLIMEPIRIDE
     Dosage: 1 MG, 1X/DAY
     Route: 048
     Dates: start: 20120404

REACTIONS (3)
  - Glycosylated haemoglobin increased [Recovering/Resolving]
  - Intentional product misuse [Recovering/Resolving]
  - Diabetes mellitus inadequate control [Recovering/Resolving]
